FAERS Safety Report 5237732-1 (Version None)
Quarter: 2007Q1

REPORT INFORMATION
  Report Type: 
  Country: None (occurrence: None)
  Receive Date: 20070214
  Receipt Date: 20070207
  Transmission Date: 20070707
  Serious: Yes (Death)
  Sender: FDA-Public Use
  Company Number: DE-BRISTOL-MYERS SQUIBB COMPANY-13671441

PATIENT

DRUGS (1)
  1. HYDROXYUREA [Suspect]

REACTIONS (1)
  - DEATH [None]
